FAERS Safety Report 9803691 (Version 1)
Quarter: 2014Q1

REPORT INFORMATION
  Report Type: Spontaneous
  Country: US (occurrence: None)
  Receive Date: 20140107
  Receipt Date: 20140107
  Transmission Date: 20141002
  Serious: Yes (Hospitalization)
  Sender: FDA-Public Use
  Company Number: None

PATIENT
  Age: 59 Year
  Sex: Male
  Weight: 75.2 kg

DRUGS (2)
  1. CEPHALEXIN [Suspect]
     Indication: URINARY TRACT INFECTION
     Route: 048
     Dates: start: 20131106, end: 20131209
  2. ERTAPENEM [Suspect]
     Indication: URINARY TRACT INFECTION
     Route: 042
     Dates: start: 20131101, end: 20131105

REACTIONS (3)
  - Clostridium difficile colitis [None]
  - Gastrointestinal stoma output increased [None]
  - Disease recurrence [None]
